FAERS Safety Report 9702107 (Version 1)
Quarter: 2013Q4

REPORT INFORMATION
  Report Type: Report from Study
  Country: ES (occurrence: ES)
  Receive Date: 20131121
  Receipt Date: 20131121
  Transmission Date: 20140711
  Serious: Yes (Hospitalization)
  Sender: FDA-Public Use
  Company Number: ES-MERCK-1311ESP006389

PATIENT
  Age: 51 Year
  Sex: Female
  Weight: 77 kg

DRUGS (5)
  1. BOCEPREVIR [Suspect]
     Indication: HEPATITIS C
     Dosage: 200 MG, QD
     Route: 048
     Dates: start: 20131012
  2. PEGINTRON [Suspect]
     Indication: HEPATITIS C
     Dosage: 100 MICROGRAMS QW
     Route: 058
     Dates: start: 20130913
  3. RIBAVIRIN [Suspect]
     Indication: HEPATITIS C
     Dosage: 1200 MG QD
     Route: 048
     Dates: start: 20130913
  4. RIBAVIRIN [Suspect]
     Dosage: 1000 MG QD
     Route: 048
     Dates: start: 20131011
  5. RIBAVIRIN [Suspect]
     Dosage: 600 MG QD
     Route: 048

REACTIONS (1)
  - Dyspepsia [Recovered/Resolved]
